FAERS Safety Report 11171121 (Version 1)
Quarter: 2015Q2

REPORT INFORMATION
  Report Type: Other
  Country: GB (occurrence: GB)
  Receive Date: 20150608
  Receipt Date: 20150608
  Transmission Date: 20150821
  Serious: Yes (Life-Threatening)
  Sender: FDA-Public Use
  Company Number: GB-MYLANLABS-2015M1017461

PATIENT

DRUGS (15)
  1. ESOMEPRAZOLE [Concomitant]
     Active Substance: ESOMEPRAZOLE
     Dosage: 40 MG, UNK
  2. MORPHINE [Concomitant]
     Active Substance: MORPHINE
     Dosage: UNK
  3. CLOPIDOGREL [Concomitant]
     Active Substance: CLOPIDOGREL BISULFATE
     Dosage: 75 MG, UNK
  4. CYCLIZINE [Concomitant]
     Active Substance: CYCLIZINE
     Dosage: UNK
  5. RITUXIMAB [Suspect]
     Active Substance: RITUXIMAB
     Indication: RHEUMATOID ARTHRITIS
     Dosage: 1 G, UNK
     Route: 042
     Dates: start: 20150408, end: 20150425
  6. COLECALCIFEROL [Concomitant]
     Active Substance: CHOLECALCIFEROL
     Dosage: UNK
  7. AMITRIPTYLINE [Concomitant]
     Active Substance: AMITRIPTYLINE
     Dosage: 25 MG, UNK
     Route: 048
  8. HYDROXYCHLOROQUINE [Concomitant]
     Active Substance: HYDROXYCHLOROQUINE
     Dosage: 200 MG, UNK
     Route: 048
  9. SIMVASTATIN. [Concomitant]
     Active Substance: SIMVASTATIN
     Dosage: 40 MG, UNK
     Route: 048
  10. PERINDOPRIL [Concomitant]
     Active Substance: PERINDOPRIL
     Dosage: 8 MG, UNK
  11. BISOPROLOL [Concomitant]
     Active Substance: BISOPROLOL
     Dosage: 5 MG, UNK
     Route: 048
  12. CODEINE PHOSPHATE [Concomitant]
     Active Substance: CODEINE PHOSPHATE
     Dosage: UNK
  13. METHOTREXATE [Suspect]
     Active Substance: METHOTREXATE
     Dosage: 20 MG, UNK
     Route: 058
     Dates: start: 20130626
  14. BUSCOPAN [Concomitant]
     Active Substance: BUTYLSCOPOLAMINE BROMIDE
     Dosage: UNK
  15. METFORMIN [Concomitant]
     Active Substance: METFORMIN HYDROCHLORIDE
     Dosage: 500 MG, TID
     Route: 048

REACTIONS (1)
  - Renal cancer [Not Recovered/Not Resolved]

NARRATIVE: CASE EVENT DATE: 20150421
